FAERS Safety Report 19642871 (Version 2)
Quarter: 2021Q3

REPORT INFORMATION
  Report Type: Report from Study
  Country: AU (occurrence: AU)
  Receive Date: 20210730
  Receipt Date: 20210813
  Transmission Date: 20211014
  Serious: Yes (Death, Other)
  Sender: FDA-Public Use
  Company Number: AU-ASTRAZENECA-2021A648914

PATIENT
  Sex: Male
  Weight: 55 kg

DRUGS (16)
  1. FASENRA [Suspect]
     Active Substance: BENRALIZUMAB
     Indication: EOSINOPHILIC PNEUMONIA
     Dosage: 30 MG S/C, 4 WEEKLY
     Route: 058
     Dates: start: 20210722, end: 20210723
  2. CARBOPLATIN. [Concomitant]
     Active Substance: CARBOPLATIN
  3. ENOXAPARIN [Concomitant]
     Active Substance: ENOXAPARIN
  4. BACTRIM [Concomitant]
     Active Substance: SULFAMETHOXAZOLE\TRIMETHOPRIM
  5. MEROPENEM. [Concomitant]
     Active Substance: MEROPENEM
  6. FOLIC ACID. [Concomitant]
     Active Substance: FOLIC ACID
  7. PARACETAMOL [Concomitant]
     Active Substance: ACETAMINOPHEN
  8. HYDROMORPHANE [Concomitant]
  9. PEMBROLIZUMAB. [Concomitant]
     Active Substance: PEMBROLIZUMAB
  10. LORAZEPAM. [Concomitant]
     Active Substance: LORAZEPAM
  11. PREDNISONE. [Concomitant]
     Active Substance: PREDNISONE
  12. SPIOLTO [Concomitant]
     Active Substance: OLODATEROL HYDROCHLORIDE\TIOTROPIUM BROMIDE MONOHYDRATE
  13. TARGIN [Concomitant]
     Active Substance: NALOXONE HYDROCHLORIDE\OXYCODONE HYDROCHLORIDE
  14. PANTOPRAZOLE [Concomitant]
     Active Substance: PANTOPRAZOLE
  15. PEMETREXED. [Concomitant]
     Active Substance: PEMETREXED
  16. NYSTATIN. [Concomitant]
     Active Substance: NYSTATIN

REACTIONS (1)
  - Malignant neoplasm progression [Unknown]
